FAERS Safety Report 5187263-2 (Version None)
Quarter: 2006Q4

REPORT INFORMATION
  Report Type: 
  Country: None (occurrence: None)
  Receive Date: 20061220
  Receipt Date: 20060922
  Transmission Date: 20070319
  Serious: No
  Sender: FDA-Public Use
  Company Number: US-AMGEN-US194450

PATIENT
  Sex: Male

DRUGS (2)
  1. ENBREL [Suspect]
     Indication: ANKYLOSING SPONDYLITIS
     Dates: start: 20050829
  2. ARAVA [Concomitant]
     Dates: start: 20040101

REACTIONS (3)
  - ARTHRALGIA [None]
  - ARTHROPATHY [None]
  - OEDEMA PERIPHERAL [None]
